FAERS Safety Report 12047885 (Version 1)
Quarter: 2016Q1

REPORT INFORMATION
  Report Type: Report from Study
  Country: DE (occurrence: DE)
  Receive Date: 20160209
  Receipt Date: 20160209
  Transmission Date: 20160526
  Serious: Yes (Hospitalization)
  Sender: FDA-Public Use
  Company Number: DE-ABBVIE-16K-062-1552456-00

PATIENT
  Age: 25 Year
  Sex: Female

DRUGS (2)
  1. HUMIRA [Suspect]
     Active Substance: ADALIMUMAB
     Indication: CROHN^S DISEASE
     Route: 058
     Dates: start: 20150417, end: 20151117
  2. HUMIRA [Suspect]
     Active Substance: ADALIMUMAB
     Dosage: 4X40 MG
     Route: 058
     Dates: start: 20151118, end: 20151204

REACTIONS (5)
  - Anal fistula [Recovering/Resolving]
  - Abdominal pain lower [Recovering/Resolving]
  - Psoriasis [Recovering/Resolving]
  - Rectal abscess [Recovering/Resolving]
  - Psoriasis [Recovering/Resolving]

NARRATIVE: CASE EVENT DATE: 201511
